FAERS Safety Report 14538031 (Version 3)
Quarter: 2018Q1

REPORT INFORMATION
  Report Type: Spontaneous
  Country: AU (occurrence: US)
  Receive Date: 20180216
  Receipt Date: 20180223
  Transmission Date: 20180509
  Serious: Yes (Death, Other)
  Sender: FDA-Public Use
  Company Number: US-009507513-1802USA008352

PATIENT
  Age: 18 Year
  Sex: Female

DRUGS (1)
  1. SINGULAIR [Suspect]
     Active Substance: MONTELUKAST SODIUM
     Dosage: UNK
     Route: 048
     Dates: start: 201711

REACTIONS (3)
  - Paranoid personality disorder [Unknown]
  - Completed suicide [Fatal]
  - Depression [Unknown]

NARRATIVE: CASE EVENT DATE: 201802
